FAERS Safety Report 9117390 (Version 1)
Quarter: 2013Q1

REPORT INFORMATION
  Report Type: Spontaneous
  Country: DE (occurrence: DE)
  Receive Date: 20130208
  Receipt Date: 20130208
  Transmission Date: 20140127
  Serious: Yes (Congenital Anomaly)
  Sender: FDA-Public Use
  Company Number: DE-MYLANLABS-2013S1001971

PATIENT
  Sex: Male
  Weight: 2.74 kg

DRUGS (2)
  1. VENLAFAXIN [Suspect]
     Dosage: DAILY DOSE: 225 MG MILLGRAM(S) EVERY DAYS
     Route: 064
  2. OPIPRAMOL [Concomitant]
     Route: 064

REACTIONS (5)
  - Polydactyly [Unknown]
  - Exposure during pregnancy [Recovered/Resolved]
  - Neonatal respiratory depression [Unknown]
  - Oxygen saturation decreased [Unknown]
  - Apnoea neonatal [Unknown]
